FAERS Safety Report 5933892-5 (Version None)
Quarter: 2008Q4

REPORT INFORMATION
  Report Type: 
  Country: None (occurrence: None)
  Receive Date: 20081029
  Receipt Date: 20081024
  Transmission Date: 20090506
  Serious: Yes (Death)
  Sender: FDA-Public Use
  Company Number: US-WYE-H06544108

PATIENT
  Sex: Male

DRUGS (1)
  1. PRISTIQ [Suspect]
     Route: 048

REACTIONS (1)
  - COMPLETED SUICIDE [None]
